FAERS Safety Report 9195083 (Version 1)
Quarter: 2013Q1

REPORT INFORMATION
  Report Type: Spontaneous
  Country: US (occurrence: US)
  Receive Date: 20130328
  Receipt Date: 20130328
  Transmission Date: 20140127
  Serious: No
  Sender: FDA-Public Use
  Company Number: US-ALLERGAN-1302919US

PATIENT
  Age: 40 Year
  Sex: Female

DRUGS (1)
  1. LATISSE 0.03% [Suspect]
     Indication: GROWTH OF EYELASHES
     Dosage: 1 GTT, QHS
     Route: 061

REACTIONS (6)
  - Pregnancy [Recovered/Resolved]
  - Drug ineffective [Unknown]
  - Eye irritation [Unknown]
  - Eye swelling [Unknown]
  - Eye pain [Unknown]
  - Eyelids pruritus [Unknown]
